FAERS Safety Report 11303212 (Version 1)
Quarter: 2015Q3

REPORT INFORMATION
  Report Type: Spontaneous
  Country: AU (occurrence: AU)
  Receive Date: 20150723
  Receipt Date: 20150723
  Transmission Date: 20151125
  Serious: Yes (Other)
  Sender: FDA-Public Use
  Company Number: PHHY2015AU085424

PATIENT

DRUGS (2)
  1. IMATINIB [Suspect]
     Active Substance: IMATINIB
     Indication: EOSINOPHILIA
  2. IMATINIB [Suspect]
     Active Substance: IMATINIB
     Indication: MYELOPROLIFERATIVE DISORDER
     Route: 065

REACTIONS (2)
  - Acute leukaemia [Unknown]
  - Off label use [Unknown]
